FAERS Safety Report 6128383-5 (Version None)
Quarter: 2009Q1

REPORT INFORMATION
  Report Type: 
  Country: None (occurrence: None)
  Receive Date: 20090323
  Receipt Date: 20080908
  Transmission Date: 20090719
  Serious: No
  Sender: FDA-Public Use
  Company Number: US-ABBOTT-08P-163-0475438-00

PATIENT
  Sex: Female

DRUGS (11)
  1. ERYTHROMYCIN ETHYLSUCCINATE ORAL SUSPENSION [Suspect]
     Indication: IMPAIRED GASTRIC EMPTYING
     Dosage: 200MG/5ML, 7.5 ML TWICE DAILY
     Route: 048
     Dates: start: 19980101
  2. RABEPRAZOLE SODIUM [Concomitant]
     Indication: GASTROINTESTINAL DISORDER
     Route: 048
  3. SUCCRALFATE [Concomitant]
     Indication: GASTROINTESTINAL DISORDER
     Route: 048
  4. NORTASE [Concomitant]
     Indication: GASTROINTESTINAL DISORDER
     Route: 048
  5. LACTASE ENZYME [Concomitant]
     Indication: GASTROINTESTINAL DISORDER
     Route: 048
  6. ESTROGENS CONJUGATED [Concomitant]
     Indication: HORMONE REPLACEMENT THERAPY
     Route: 048
  7. METAPROLOL [Concomitant]
     Indication: ARRHYTHMIA
     Route: 048
  8. METOPROLOL SUCCINATE [Concomitant]
     Indication: ARRHYTHMIA
     Route: 048
  9. RISEDRONATE SODIUM [Concomitant]
     Indication: GASTROINTESTINAL DISORDER
     Route: 048
  10. CENTRUM SILVER [Concomitant]
     Indication: VITAMIN SUPPLEMENTATION
     Route: 048
  11. CALCIUM [Concomitant]
     Indication: MINERAL SUPPLEMENTATION
     Route: 048

REACTIONS (1)
  - DRUG INEFFECTIVE [None]
